FAERS Safety Report 18740485 (Version 1)
Quarter: 2021Q1

REPORT INFORMATION
  Report Type: Spontaneous
  Country: US (occurrence: US)
  Receive Date: 20210114
  Receipt Date: 20210114
  Transmission Date: 20210419
  Serious: No
  Sender: FDA-Public Use
  Company Number: None

PATIENT
  Age: 38 Year
  Sex: Male
  Weight: 103.5 kg

DRUGS (6)
  1. DEXTROAMPHET SACCHARAT, AMPHET ASPARTATE, DEXTROAMPHET SULFATE AND AMPHET SULFAT [Suspect]
     Active Substance: AMPHETAMINE ASPARTATE\AMPHETAMINE SULFATE\DEXTROAMPHETAMINE SACCHARATE\DEXTROAMPHETAMINE SULFATE
     Indication: ATTENTION DEFICIT HYPERACTIVITY DISORDER
     Dosage: ?          QUANTITY:45 TABLET(S);?
  2. MOTRIN [Concomitant]
     Active Substance: IBUPROFEN
  3. OCREVUS [Concomitant]
     Active Substance: OCRELIZUMAB
  4. TYLENOL [Concomitant]
     Active Substance: ACETAMINOPHEN
  5. VITAMIN D [Concomitant]
     Active Substance: VITAMIN D NOS
  6. BACLOFEN. [Concomitant]
     Active Substance: BACLOFEN

REACTIONS (6)
  - Manufacturing issue [None]
  - Drug intolerance [None]
  - Headache [None]
  - Irritability [None]
  - Drug ineffective [None]
  - Anger [None]

NARRATIVE: CASE EVENT DATE: 20210104
